FAERS Safety Report 8587130-8 (Version None)
Quarter: 2012Q3

REPORT INFORMATION
  Report Type: 
  Country: None (occurrence: None)
  Receive Date: 20120810
  Receipt Date: 20120803
  Transmission Date: 20120928
  Serious: Yes (Hospitalization)
  Sender: FDA-Public Use
  Company Number: US-VERTEX PHARMACEUTICALS INC.-AE-2012-011690

PATIENT
  Sex: Male

DRUGS (4)
  1. INCIVEK [Concomitant]
  2. PEGASYS [Concomitant]
     Indication: HEPATITIS C
     Dates: start: 20110901
  3. INCIVEK [Suspect]
     Indication: HEPATITIS C
     Route: 048
     Dates: start: 20110901, end: 20111125
  4. RIBAVIRIN [Concomitant]
     Indication: HEPATITIS C
     Dates: start: 20110901

REACTIONS (2)
  - RASH [None]
  - PRURITUS [None]
